FAERS Safety Report 8914326 (Version 2)
Quarter: 2012Q4

REPORT INFORMATION
  Report Type: 
  Country: US (occurrence: US)
  Receive Date: 20121119
  Receipt Date: 20121204
  Transmission Date: 20130627
  Serious: Yes (Other)
  Sender: FDA-Public Use
  Company Number: US-PFIZER INC-2012281611

PATIENT
  Sex: Male

DRUGS (1)
  1. XYNTHA [Suspect]
     Indication: HEMOPHILIA A
     Dosage: UNK
     Dates: start: 201206, end: 2012

REACTIONS (2)
  - Rash [Recovered/Resolved]
  - Rash papular [Recovered/Resolved]
